FAERS Safety Report 16676920 (Version 1)
Quarter: 2019Q3

REPORT INFORMATION
  Report Type: Spontaneous
  Country: FR (occurrence: FR)
  Receive Date: 20190807
  Receipt Date: 20190807
  Transmission Date: 20191004
  Serious: Yes (Hospitalization)
  Sender: FDA-Public Use
  Company Number: FR-ACCORD-150346

PATIENT
  Age: 70 Year
  Sex: Male

DRUGS (5)
  1. IRINOTECAN [Suspect]
     Active Substance: IRINOTECAN
     Indication: PANCREATIC CARCINOMA STAGE IV
     Dosage: 180 MG/ SQ M
     Route: 042
     Dates: start: 20190525
  2. OXALIPLATIN. [Suspect]
     Active Substance: OXALIPLATIN
     Indication: PANCREATIC CARCINOMA STAGE IV
     Dosage: 65 MG/ SQ M
     Route: 042
     Dates: start: 20190525
  3. INNOHEP [Suspect]
     Active Substance: TINZAPARIN SODIUM
     Indication: THROMBOSIS PROPHYLAXIS
     Route: 058
     Dates: start: 20190522, end: 20190708
  4. DIFFU K [Concomitant]
     Active Substance: POTASSIUM CHLORIDE
  5. FLUOROURACIL. [Suspect]
     Active Substance: FLUOROURACIL
     Indication: PANCREATIC CARCINOMA STAGE IV
     Dosage: 2400 MG/ SQ M
     Route: 042
     Dates: start: 20190525

REACTIONS (3)
  - Peritoneal haematoma [Recovering/Resolving]
  - Anaemia [Recovering/Resolving]
  - Off label use [Unknown]

NARRATIVE: CASE EVENT DATE: 20190708
